FAERS Safety Report 15670975 (Version 1)
Quarter: 2018Q4

REPORT INFORMATION
  Report Type: Spontaneous
  Country: US (occurrence: US)
  Receive Date: 20181129
  Receipt Date: 20181129
  Transmission Date: 20190205
  Serious: No
  Sender: FDA-Public Use
  Company Number: US-PFIZER INC-2018486946

PATIENT
  Age: 64 Year

DRUGS (7)
  1. IBUPROFEN. [Suspect]
     Active Substance: IBUPROFEN
     Dosage: UNK
  2. UPTRAVI [Suspect]
     Active Substance: SELEXIPAG
     Dosage: UNK
  3. ROBAXIN [Suspect]
     Active Substance: METHOCARBAMOL
     Dosage: UNK
  4. VIOXX [Suspect]
     Active Substance: ROFECOXIB
     Dosage: UNK
  5. CELEBREX [Suspect]
     Active Substance: CELECOXIB
     Dosage: UNK
  6. TRAMADOL. [Suspect]
     Active Substance: TRAMADOL
     Dosage: UNK
  7. TYVASO [Suspect]
     Active Substance: TREPROSTINIL
     Dosage: UNK

REACTIONS (1)
  - Drug hypersensitivity [Unknown]
